FAERS Safety Report 6404101-8 (Version None)
Quarter: 2009Q4

REPORT INFORMATION
  Report Type: 
  Country: None (occurrence: None)
  Receive Date: 20091016
  Receipt Date: 20090828
  Transmission Date: 20100525
  Serious: No
  Sender: FDA-Public Use
  Company Number: US-ALEXION-A200900704

PATIENT
  Sex: Male

DRUGS (14)
  1. SOLIRIS [Suspect]
     Indication: PAROXYSMAL NOCTURNAL HAEMOGLOBINURIA
     Dosage: 600 MG, UNK
     Route: 042
     Dates: start: 20070520
  2. SOLIRIS [Suspect]
     Dosage: 900 MG, UNK
     Route: 042
     Dates: start: 20070625
  3. SOLIRIS [Suspect]
     Dosage: 900 MG, Q12D
     Route: 042
  4. ADVAIR DISKUS 100/50 [Concomitant]
     Indication: ASTHMA
     Dosage: UNK
  5. MS CONTIN [Concomitant]
     Indication: BACK PAIN
     Dosage: 45 MG, BID
     Route: 048
  6. PREDNISONE [Concomitant]
     Indication: PAROXYSMAL NOCTURNAL HAEMOGLOBINURIA
     Dosage: 2 MG, QD
     Route: 048
  7. PROTONIX                           /01263201/ [Concomitant]
     Indication: PROPHYLAXIS
     Dosage: 40 MG, BID
     Route: 048
  8. EXJADE [Concomitant]
     Indication: IRON OVERLOAD
     Dosage: 500 MG, 4 TABS QD
     Route: 048
  9. RESTORIL                           /00393701/ [Concomitant]
     Indication: SLEEP DISORDER
     Dosage: 15 MG, QD
     Route: 048
  10. ZANAFLEX [Concomitant]
     Indication: MUSCLE SPASMS
     Dosage: 4 MG, PRN
     Route: 048
  11. FRAGMIN                            /01708302/ [Concomitant]
     Indication: THROMBOSIS PROPHYLAXIS
     Dosage: 18000 UT, QD
  12. PROCRIT                            /00909301/ [Concomitant]
     Indication: BLOOD COUNT ABNORMAL
     Dosage: 80000 UT, QW
  13. NEUPOGEN [Concomitant]
     Indication: NEUTROPENIA
     Dosage: UNK
     Route: 048
  14. UNSPECIFIED MEDICATION [Concomitant]
     Indication: ABDOMINAL DISTENSION
     Dosage: UNK
     Route: 048

REACTIONS (1)
  - BLOOD PRODUCT TRANSFUSION DEPENDENT [None]
